FAERS Safety Report 18992919 (Version 4)
Quarter: 2022Q1

REPORT INFORMATION
  Report Type: Spontaneous
  Country: US (occurrence: US)
  Receive Date: 20210310
  Receipt Date: 20220321
  Transmission Date: 20220423
  Serious: Yes (Death, Other)
  Sender: FDA-Public Use
  Company Number: US-PFIZER INC-2021243673

PATIENT
  Sex: Female
  Weight: 3.1 kg

DRUGS (2)
  1. CARBOCAINE [Suspect]
     Active Substance: MEPIVACAINE HYDROCHLORIDE
     Indication: Local anaesthesia
     Dosage: 100 MG
  2. CARBOCAINE [Suspect]
     Active Substance: MEPIVACAINE HYDROCHLORIDE
     Dosage: 200 MG

REACTIONS (8)
  - Foetal exposure during delivery [Fatal]
  - Accidental exposure to product [Fatal]
  - Toxicity to various agents [Fatal]
  - Neonatal respiratory depression [Fatal]
  - Pulmonary haemorrhage neonatal [Fatal]
  - Neonatal asphyxia [Fatal]
  - Neonatal seizure [Unknown]
  - Bradycardia neonatal [Unknown]
